FAERS Safety Report 6964596-8 (Version None)
Quarter: 2010Q3

REPORT INFORMATION
  Report Type: 
  Country: None (occurrence: None)
  Receive Date: 20100903
  Receipt Date: 20100826
  Transmission Date: 20110219
  Serious: Yes (Other)
  Sender: FDA-Public Use
  Company Number: US-ASTRAZENECA-2007UW21664

PATIENT
  Age: 498 Month
  Sex: Female
  Weight: 129.3 kg

DRUGS (53)
  1. SEROQUEL [Suspect]
     Indication: ANXIETY
     Dosage: 25 TO 50 MG
     Route: 048
     Dates: start: 20040305
  2. SEROQUEL [Suspect]
     Indication: DEPRESSION
     Dosage: 25 TO 50 MG
     Route: 048
     Dates: start: 20040305
  3. SEROQUEL [Suspect]
     Indication: BIPOLAR DISORDER
     Dosage: 25 TO 50 MG
     Route: 048
     Dates: start: 20040305
  4. SEROQUEL [Suspect]
     Indication: SLEEP DISORDER
     Dosage: 25 TO 50 MG
     Route: 048
     Dates: start: 20040305
  5. SEROQUEL [Suspect]
     Dosage: 25 TO 300 MG
     Route: 048
  6. SEROQUEL [Suspect]
     Dosage: 25 TO 300 MG
     Route: 048
  7. SEROQUEL [Suspect]
     Dosage: 25 TO 300 MG
     Route: 048
  8. SEROQUEL [Suspect]
     Dosage: 25 TO 300 MG
     Route: 048
  9. SEROQUEL [Suspect]
     Dosage: 25 TO 100 MG
     Route: 048
  10. SEROQUEL [Suspect]
     Dosage: 25 TO 100 MG
     Route: 048
  11. SEROQUEL [Suspect]
     Dosage: 25 TO 100 MG
     Route: 048
  12. SEROQUEL [Suspect]
     Dosage: 25 TO 100 MG
     Route: 048
  13. CLIMARA [Concomitant]
  14. SYNTHROID [Concomitant]
     Dates: start: 20041115
  15. HYDROCHLOROTHIAZIDE [Concomitant]
     Dates: start: 20041115
  16. FERROUS SULFATE [Concomitant]
  17. BIAXIN [Concomitant]
  18. AVAPRO [Concomitant]
     Dates: start: 20041115
  19. ZOLOFT [Concomitant]
     Dates: start: 20040305
  20. TRILEPTAL [Concomitant]
     Indication: ANGER
     Dates: start: 20040305
  21. POTASSIUM CL [Concomitant]
  22. IBUPROFEN [Concomitant]
     Dosage: 800 MG TAB TID PRN WITH FOOD
     Dates: start: 20041115
  23. HYDROCODONE [Concomitant]
  24. GUAIFENESIN [Concomitant]
  25. RANITIDINE [Concomitant]
  26. ALBUTEROL [Concomitant]
  27. PROPOXY [Concomitant]
  28. PROVENTIL-HFA [Concomitant]
  29. ZITHROMAX [Concomitant]
  30. GEODON [Concomitant]
  31. PROMETHAZINE W/ CODEINE [Concomitant]
  32. AMOXICILLIN AND CLAVULANATE POTASSIUM [Concomitant]
  33. PRILOSEC [Concomitant]
  34. METFORMIN [Concomitant]
  35. GLIMEPIRIDE [Concomitant]
  36. FLUCONAZOLE [Concomitant]
  37. ZMAX [Concomitant]
  38. DIPHENHYDRAMINE HCL [Concomitant]
  39. CLARITHROMYCIN [Concomitant]
  40. TAMIFLU [Concomitant]
  41. LEVAQUIN [Concomitant]
  42. PREDNISONE [Concomitant]
  43. LEVOTHYROXINE SODIUM [Concomitant]
  44. NYSTATIN [Concomitant]
  45. DIOVAN [Concomitant]
  46. NORVASC [Concomitant]
     Dates: start: 20041115
  47. SERTRALINE HYDROCHLORIDE [Concomitant]
  48. ZOLPIDEM [Concomitant]
  49. CEPHALEXIN [Concomitant]
  50. FAMOTIDINE [Concomitant]
  51. SULFATRIM [Concomitant]
  52. CLOZARIL [Concomitant]
  53. AMBIEN [Concomitant]

REACTIONS (36)
  - ABDOMINAL DISCOMFORT [None]
  - ABDOMINAL PAIN UPPER [None]
  - ANAEMIA [None]
  - ARTHRALGIA [None]
  - ARTHROPOD BITE [None]
  - BASEDOW'S DISEASE [None]
  - BLOOD CHOLESTEROL INCREASED [None]
  - BRONCHITIS [None]
  - CARBOHYDRATE METABOLISM DISORDER [None]
  - DERMATITIS [None]
  - DIABETES MELLITUS [None]
  - DIABETIC COMPLICATION [None]
  - DIARRHOEA [None]
  - GLUCOSE TOLERANCE IMPAIRED [None]
  - HEADACHE [None]
  - HERPES SIMPLEX [None]
  - HYPERHIDROSIS [None]
  - HYPERLIPIDAEMIA [None]
  - HYPERTHYROIDISM [None]
  - HYPOGLYCAEMIA [None]
  - INFECTIOUS MONONUCLEOSIS [None]
  - INFLUENZA [None]
  - INSOMNIA [None]
  - METASTASIS [None]
  - NAUSEA [None]
  - NOCTURIA [None]
  - OBESITY [None]
  - OROPHARYNGEAL PAIN [None]
  - RELAPSING FEVER [None]
  - SINUSITIS [None]
  - SUBCUTANEOUS ABSCESS [None]
  - TOXOPLASMOSIS [None]
  - VOMITING [None]
  - VULVOVAGINAL CANDIDIASIS [None]
  - WEIGHT INCREASED [None]
  - WHEEZING [None]
